FAERS Safety Report 23110790 (Version 1)
Quarter: 2023Q4

REPORT INFORMATION
  Report Type: Spontaneous
  Country: CN (occurrence: CN)
  Receive Date: 20231026
  Receipt Date: 20231026
  Transmission Date: 20240110
  Serious: Yes (Other)
  Sender: FDA-Public Use
  Company Number: CN-SUN PHARMACEUTICAL INDUSTRIES LTD-2023R1-414728

PATIENT
  Age: 49 Year
  Sex: Female

DRUGS (4)
  1. CAPECITABINE [Suspect]
     Active Substance: CAPECITABINE
     Indication: Chemotherapy
     Dosage: UNK
     Route: 065
     Dates: start: 20200322
  2. PYROTINIB [Suspect]
     Active Substance: PYROTINIB
     Indication: Chemotherapy
     Dosage: UNK
     Route: 065
     Dates: start: 20200322
  3. MANNITOL [Concomitant]
     Active Substance: MANNITOL
     Indication: CSF pressure
     Dosage: UNK
     Route: 065
  4. DEXAMETHASONE [Concomitant]
     Active Substance: DEXAMETHASONE
     Indication: CSF pressure
     Dosage: UNK
     Route: 065

REACTIONS (1)
  - Disease progression [Unknown]
